FAERS Safety Report 6463920-2 (Version None)
Quarter: 2009Q4

REPORT INFORMATION
  Report Type: 
  Country: None (occurrence: None)
  Receive Date: 20091201
  Receipt Date: 20091120
  Transmission Date: 20100525
  Serious: Yes (Hospitalization)
  Sender: FDA-Public Use
  Company Number: US-JNJFOC-20091106636

PATIENT
  Sex: Male
  Weight: 81.65 kg

DRUGS (6)
  1. DURAGESIC-100 [Suspect]
     Indication: BACK PAIN
     Route: 062
     Dates: start: 20020101, end: 20091120
  2. ADDERALL 10 [Concomitant]
     Indication: SLEEP DISORDER THERAPY
     Route: 048
  3. KLONOPIN [Concomitant]
     Route: 048
  4. METOPROLOL [Concomitant]
     Indication: CARDIAC DISORDER
     Route: 048
  5. HYDROCHLOROTHIAZIDE [Concomitant]
     Indication: CARDIAC DISORDER
     Route: 048
  6. OXYCONTIN [Concomitant]
     Indication: PAIN
     Route: 048

REACTIONS (3)
  - AORTIC VALVE REPLACEMENT [None]
  - INCREASED APPETITE [None]
  - WRONG TECHNIQUE IN DRUG USAGE PROCESS [None]
